FAERS Safety Report 15634439 (Version 3)
Quarter: 2019Q1

REPORT INFORMATION
  Report Type: Spontaneous
  Country: US (occurrence: US)
  Receive Date: 20181119
  Receipt Date: 20190226
  Transmission Date: 20190417
  Serious: Yes (Hospitalization, Other)
  Sender: FDA-Public Use
  Company Number: US-PFIZER INC-2018281275

PATIENT
  Age: 66 Year
  Sex: Male
  Weight: 81.63 kg

DRUGS (6)
  1. XALKORI [Suspect]
     Active Substance: CRIZOTINIB
     Indication: ADENOCARCINOMA
     Dosage: 250 MG, 1X/DAY (FOR 10 DAYS)
     Dates: start: 20170717
  2. XALKORI [Suspect]
     Active Substance: CRIZOTINIB
     Dosage: 200 MG, 2X/DAY
     Route: 048
     Dates: start: 201809, end: 201812
  3. IGG [Concomitant]
     Active Substance: HUMAN IMMUNOGLOBULIN G
     Dosage: UNK, EVERY 28 DAYS
  4. XALKORI [Suspect]
     Active Substance: CRIZOTINIB
     Dosage: 250 MG, 2X/DAY
  5. GAMMA GLOBULIN [Concomitant]
     Active Substance: IMMUNE GLOBULIN NOS
     Dosage: UNK
  6. XALKORI [Suspect]
     Active Substance: CRIZOTINIB
     Dosage: 250 MG, UNK

REACTIONS (10)
  - Neoplasm progression [Unknown]
  - Clavicle fracture [Unknown]
  - Cardiac ventricular thrombosis [Unknown]
  - Nausea [Unknown]
  - Fall [Unknown]
  - Haemoptysis [Recovered/Resolved]
  - Cardiac disorder [Unknown]
  - Streptococcal infection [Recovered/Resolved]
  - Myocardial infarction [Unknown]
  - Seizure [Unknown]

NARRATIVE: CASE EVENT DATE: 2018
